FAERS Safety Report 6016923-6 (Version None)
Quarter: 2008Q4

REPORT INFORMATION
  Report Type: 
  Country: None (occurrence: None)
  Receive Date: 20081218
  Receipt Date: 20081209
  Transmission Date: 20090506
  Serious: Yes (Other)
  Sender: FDA-Public Use
  Company Number: CHPA2008US21973

PATIENT
  Sex: Male

DRUGS (1)
  1. GAS-X CHEWABLE TABLETS UNKNOWN (NCH) (SIMETHICONE) CHEWABLE TABLET [Suspect]
     Indication: FLATULENCE
     Dosage: 20 DF, ORAL
     Route: 048

REACTIONS (3)
  - FREQUENT BOWEL MOVEMENTS [None]
  - HAEMORRHAGE [None]
  - OVERDOSE [None]
